FAERS Safety Report 25455908 (Version 4)
Quarter: 2025Q3

REPORT INFORMATION
  Report Type: Report from Study
  Country: US (occurrence: US)
  Receive Date: 20250619
  Receipt Date: 20250919
  Transmission Date: 20251021
  Serious: Yes (Hospitalization, Other)
  Sender: UNITED THERAPEUTICS
  Company Number: US-UNITED THERAPEUTICS-UNT-2025-016055

PATIENT
  Age: 48 Year
  Sex: Female

DRUGS (7)
  1. TREPROSTINIL [Interacting]
     Active Substance: TREPROSTINIL
     Indication: Pulmonary arterial hypertension
     Dosage: 10.5 MG (2 TABLETS OF 0.25 MG AND 5 MG EACH), TID
  2. TREPROSTINIL [Interacting]
     Active Substance: TREPROSTINIL
  3. ORENITRAM [Interacting]
     Active Substance: TREPROSTINIL
     Indication: Pulmonary arterial hypertension
  4. ORENITRAM [Interacting]
     Active Substance: TREPROSTINIL
     Indication: Pulmonary arterial hypertension
  5. AMBRISENTAN [Interacting]
     Active Substance: AMBRISENTAN
     Indication: Pulmonary arterial hypertension
  6. OPSUMIT [Interacting]
     Active Substance: MACITENTAN
     Indication: Pulmonary arterial hypertension
  7. SOTATERCEPT [Interacting]
     Active Substance: SOTATERCEPT
     Indication: Pulmonary arterial hypertension

REACTIONS (16)
  - Hypotension [Unknown]
  - Pneumonia influenzal [Unknown]
  - Bronchitis [Unknown]
  - Flushing [Not Recovered/Not Resolved]
  - Dyspnoea [Unknown]
  - Fatigue [Unknown]
  - Dyspnoea exertional [Unknown]
  - Productive cough [Unknown]
  - Diarrhoea [Unknown]
  - Wheezing [Unknown]
  - Gout [Unknown]
  - Drug hypersensitivity [Unknown]
  - Drug interaction [Unknown]
  - Dizziness [Unknown]
  - Pain in extremity [Recovering/Resolving]
  - Arthralgia [Recovering/Resolving]

NARRATIVE: CASE EVENT DATE: 20250608
